FAERS Safety Report 14289918 (Version 1)
Quarter: 2017Q4

REPORT INFORMATION
  Report Type: Spontaneous
  Country: US (occurrence: US)
  Receive Date: 20171215
  Receipt Date: 20171215
  Transmission Date: 20180321
  Serious: Yes (Death)
  Sender: FDA-Public Use
  Company Number: None

PATIENT
  Age: 69 Year
  Sex: Male
  Weight: 85.4 kg

DRUGS (2)
  1. OXALIPLATIN. [Suspect]
     Active Substance: OXALIPLATIN
     Indication: COLON CANCER METASTATIC
     Dosage: ?          OTHER FREQUENCY:EVERY 14 DAYS;?
     Route: 041
  2. LEUCOVORIN. [Suspect]
     Active Substance: LEUCOVORIN
     Indication: COLON CANCER METASTATIC
     Dosage: ?          OTHER FREQUENCY:EVERY 14 DAYS;?
     Route: 041
     Dates: start: 20171120, end: 20171211

REACTIONS (6)
  - Erythema [None]
  - Malaise [None]
  - Infusion related reaction [None]
  - Cough [None]
  - Unresponsive to stimuli [None]
  - Neutropenia [None]

NARRATIVE: CASE EVENT DATE: 20171211
